FAERS Safety Report 12720042 (Version 1)
Quarter: 2016Q3

REPORT INFORMATION
  Report Type: Report from Study
  Country: US (occurrence: US)
  Receive Date: 20160907
  Receipt Date: 20160907
  Transmission Date: 20161109
  Serious: Yes (Other)
  Sender: FDA-Public Use
  Company Number: US-AMGEN-USASL2016115337

PATIENT
  Age: 78 Year
  Sex: Male
  Weight: 85.55 kg

DRUGS (5)
  1. VIAGRA [Concomitant]
     Active Substance: SILDENAFIL CITRATE
     Dosage: 100 MG, AS NEEDED
     Route: 048
  2. PROCRIT [Suspect]
     Active Substance: ERYTHROPOIETIN
     Indication: ANAEMIA MACROCYTIC
     Dosage: 40,000 UNITS, ONCE EACH WEEK
     Route: 058
     Dates: start: 20160622
  3. ASPIRIN. [Concomitant]
     Active Substance: ASPIRIN
     Dosage: 325 MG, ONCE A DAY
     Route: 048
  4. COENZYME Q10 [Concomitant]
     Active Substance: UBIDECARENONE
     Dosage: 100 MG, DAILY
     Route: 048
  5. CENTRUM [Concomitant]
     Active Substance: VITAMINS
     Dosage: UNK UNK, DAILY
     Route: 048

REACTIONS (17)
  - Increased tendency to bruise [Unknown]
  - Mean cell haemoglobin increased [Unknown]
  - Platelet count increased [Unknown]
  - Blood pressure systolic increased [Unknown]
  - Blood sodium decreased [Unknown]
  - Red blood cell count decreased [Unknown]
  - Oropharyngeal pain [Unknown]
  - Monocyte count increased [Unknown]
  - Blood iron increased [Unknown]
  - Blood glucose increased [Unknown]
  - Serum ferritin increased [Unknown]
  - Haematocrit decreased [Unknown]
  - Depressed level of consciousness [Unknown]
  - Anion gap decreased [Unknown]
  - Haemoglobin decreased [Not Recovered/Not Resolved]
  - Mean cell volume increased [Unknown]
  - Disorientation [Unknown]
